FAERS Safety Report 4940764-1 (Version None)
Quarter: 2006Q1

REPORT INFORMATION
  Report Type: 
  Country: None (occurrence: None)
  Receive Date: 20060307
  Receipt Date: 20060227
  Transmission Date: 20060701
  Serious: Yes (Hospitalization, Other)
  Sender: FDA-Public Use
  Company Number: 13567

PATIENT
  Age: 12 Year
  Sex: Female
  Weight: 38 kg

DRUGS (2)
  1. METHOTREXATE [Suspect]
     Dosage: 100 MG WEEKLY SC
     Route: 058
     Dates: start: 20050901, end: 20060201
  2. FELDENE [Concomitant]

REACTIONS (1)
  - MUCOSAL INFLAMMATION [None]
